FAERS Safety Report 10186754 (Version 2)
Quarter: 2014Q2

REPORT INFORMATION
  Report Type: Spontaneous
  Country: US (occurrence: US)
  Receive Date: 20140521
  Receipt Date: 20140612
  Transmission Date: 20141212
  Serious: Yes (Hospitalization)
  Sender: FDA-Public Use
  Company Number: PHEH2014US009909

PATIENT
  Sex: Male

DRUGS (30)
  1. RECLAST [Suspect]
     Dosage: 5 MG/100ML, (1 PER YEAR)
     Route: 042
     Dates: start: 20140424
  2. CITALOPRAM HYDROBROMIDE [Concomitant]
     Indication: MAJOR DEPRESSION
     Dosage: 1 TO 2 DF QD
     Route: 048
     Dates: start: 20120525
  3. CITALOPRAM HYDROBROMIDE [Concomitant]
     Dosage: 1 DF PO QD
     Route: 048
     Dates: start: 20121007
  4. CITALOPRAM HYDROBROMIDE [Concomitant]
     Dosage: 1 DF QD
     Route: 048
     Dates: start: 20131107
  5. CITALOPRAM HYDROBROMIDE [Concomitant]
     Dosage: 1 TO 2 DF QD
     Route: 048
     Dates: start: 20140102
  6. PRIMIDONE [Concomitant]
     Dosage: 2 DF, QHS
     Route: 048
  7. FISH OIL [Concomitant]
     Dosage: 2 DF, BID
     Route: 048
  8. CENTRUM SILVER [Concomitant]
     Dosage: 1 DF, QD
     Route: 048
  9. BILBERRY [Concomitant]
     Dosage: 120 MG, 2 DAILY
  10. VITAMIN D3 [Concomitant]
     Dosage: 5000 U, A WEEK
     Route: 048
  11. LORAZEPAM [Concomitant]
     Indication: ANXIETY
     Dosage: 1 DF, BID PRN
     Route: 048
     Dates: start: 20130505
  12. LORAZEPAM [Concomitant]
     Dosage: 1 DF, BID PRN
     Route: 048
     Dates: start: 20130926
  13. LORAZEPAM [Concomitant]
     Dosage: 1 DF, BID PRN
     Route: 048
     Dates: start: 20140403
  14. LORAZEPAM [Concomitant]
     Dosage: 1 DF, TID PRN
     Route: 048
     Dates: start: 20140522
  15. PERCOCET [Concomitant]
     Indication: BACK PAIN
     Dosage: 1 DF, QID
     Route: 048
     Dates: start: 20130926
  16. PERCOCET [Concomitant]
     Dosage: 1 DF, QID
     Route: 048
     Dates: start: 20140527
  17. AVODART [Concomitant]
     Indication: BENIGN PROSTATIC HYPERPLASIA
     Dosage: 1 UNK, UNK
     Dates: start: 20120626, end: 20130604
  18. AVODART [Concomitant]
     Indication: URINARY TRACT OBSTRUCTION
     Dosage: 1 DF, QD
     Route: 048
     Dates: start: 20131101
  19. HYDRALAZINE [Concomitant]
     Indication: ESSENTIAL HYPERTENSION
     Dosage: 1 DF, QID IF BP IS MORE THAT 140/90
     Route: 048
     Dates: start: 20140106
  20. HYDRALAZINE [Concomitant]
     Dosage: 1 DF, QID IF BP IS MORE THAT 140/90
     Route: 048
     Dates: start: 20140109
  21. FUROSEMIDE [Concomitant]
     Indication: ESSENTIAL HYPERTENSION
     Dosage: 1 DF, QAM
     Dates: start: 20131210
  22. FUROSEMIDE [Concomitant]
     Dosage: 1 DF, EVERY MORNING
     Route: 048
     Dates: start: 20140203, end: 20140206
  23. FUROSEMIDE [Concomitant]
     Dosage: 1 DF, QD
     Route: 048
     Dates: start: 20140206
  24. CLONIDINE HCL [Concomitant]
     Indication: MALIGNANT HYPERTENSION
     Dosage: 1 TO 2 PO DAILY IF BP MORE THAN 145
     Route: 048
     Dates: start: 20140204
  25. CLONIDINE HCL [Concomitant]
     Dosage: 1 PO DAILY PRN IF BP MORE THAN 160
     Route: 048
     Dates: start: 20140529
  26. TRAZODONE HYDROCHLORIDE [Concomitant]
     Indication: SLEEP DISORDER
     Dosage: 1 UNK, UNK
     Route: 048
     Dates: start: 20140304
  27. TRAZODONE HYDROCHLORIDE [Concomitant]
     Dosage: 1 TO 2 DF PO QHS PRN
     Route: 048
     Dates: start: 20140414
  28. OMEPRAZOLE [Concomitant]
     Indication: GASTROOESOPHAGEAL REFLUX DISEASE
     Dosage: 1 PO BID
     Route: 048
  29. CALCIUM 600+VITAMIN D3 400 [Concomitant]
     Dosage: 1 DF, QD
     Route: 048
     Dates: start: 20140424
  30. LASIX [Concomitant]
     Indication: HYPERTENSION
     Dosage: 40 DF, QD
     Route: 048

REACTIONS (20)
  - Peripheral swelling [Unknown]
  - Hypophagia [Unknown]
  - Spinal deformity [Unknown]
  - Concomitant disease aggravated [Unknown]
  - Spinal fracture [Unknown]
  - Hyponatraemia [Recovered/Resolved]
  - Pruritus generalised [Unknown]
  - Pain in extremity [Unknown]
  - Headache [Unknown]
  - Influenza like illness [Unknown]
  - Nausea [Unknown]
  - Pain [Unknown]
  - Pyrexia [Unknown]
  - Chills [Unknown]
  - Vomiting [Unknown]
  - Diarrhoea [Unknown]
  - Urticaria [Unknown]
  - Asthenia [Recovering/Resolving]
  - Constipation [Recovering/Resolving]
  - Abdominal pain upper [Unknown]
